FAERS Safety Report 14995160 (Version 2)
Quarter: 2018Q4

REPORT INFORMATION
  Report Type: Spontaneous
  Country: JP (occurrence: JP)
  Receive Date: 20180611
  Receipt Date: 20181006
  Transmission Date: 20190204
  Serious: Yes (Hospitalization, Other)
  Sender: FDA-Public Use
  Company Number: JP-AMGEN-JPNSP2018079212

PATIENT
  Age: 77 Year
  Sex: Male
  Weight: 65.7 kg

DRUGS (32)
  1. FLUOROURACIL. [Concomitant]
     Active Substance: FLUOROURACIL
     Dosage: 660 MG, Q2WK
     Route: 040
     Dates: start: 20180605, end: 20180605
  2. FLUOROURACIL. [Concomitant]
     Active Substance: FLUOROURACIL
     Dosage: UNK
     Route: 042
     Dates: start: 20180828
  3. MINOCYCLINE HYDROCHLORIDE. [Concomitant]
     Active Substance: MINOCYCLINE HYDROCHLORIDE
     Dosage: 100 MG, QD
     Route: 048
  4. VECTIBIX [Suspect]
     Active Substance: PANITUMUMAB
     Dosage: UNK
     Route: 041
     Dates: start: 20180828
  5. IRINOTECAN HYDROCHLORIDE. [Suspect]
     Active Substance: IRINOTECAN HYDROCHLORIDE
     Dosage: UNK
     Route: 041
     Dates: start: 20180828
  6. FLUOROURACIL. [Concomitant]
     Active Substance: FLUOROURACIL
     Dosage: 600 MG, Q2WK
     Route: 040
     Dates: start: 20180703, end: 20180703
  7. SENNOSIDE A+B [Concomitant]
     Active Substance: SENNOSIDES A AND B
     Dosage: 24 MG, QD
     Route: 048
  8. MUCOPOLYSACCHARIDE POLYSULFURIC ACID ESTER [Concomitant]
     Dosage: UNK
     Route: 062
  9. IRINOTECAN HYDROCHLORIDE. [Suspect]
     Active Substance: IRINOTECAN HYDROCHLORIDE
     Indication: RECTAL CANCER
     Dosage: 200 MG, Q2WEEKS
     Route: 041
     Dates: start: 20180508, end: 20180508
  10. IRINOTECAN HYDROCHLORIDE. [Suspect]
     Active Substance: IRINOTECAN HYDROCHLORIDE
     Dosage: 160 MG, Q2WEEKS
     Route: 041
     Dates: start: 20180703, end: 20180703
  11. FLUOROURACIL. [Concomitant]
     Active Substance: FLUOROURACIL
     Dosage: 3930 MG, Q2WK
     Route: 041
     Dates: start: 20180508, end: 20180510
  12. FLUOROURACIL. [Concomitant]
     Active Substance: FLUOROURACIL
     Dosage: UNK
     Route: 040
     Dates: start: 20180731, end: 20180731
  13. ACLATONIUM NAPADISILATE [Concomitant]
     Dosage: 50 MG, TID
     Route: 048
  14. VECTIBIX [Suspect]
     Active Substance: PANITUMUMAB
     Dosage: 300 MG, Q2WEEKS
     Route: 041
     Dates: start: 20180605, end: 20180605
  15. IRINOTECAN HYDROCHLORIDE. [Suspect]
     Active Substance: IRINOTECAN HYDROCHLORIDE
     Dosage: UNK
     Route: 041
     Dates: start: 20180731, end: 20180731
  16. FLUOROURACIL. [Concomitant]
     Active Substance: FLUOROURACIL
     Dosage: UNK
     Route: 041
     Dates: start: 20180731
  17. EPINASTINE HYDROCHLORIDE. [Concomitant]
     Active Substance: EPINASTINE HYDROCHLORIDE
     Dosage: 20 MG, QD
     Route: 048
  18. MINOCYCLINE HYDROCHLORIDE. [Concomitant]
     Active Substance: MINOCYCLINE HYDROCHLORIDE
     Dosage: 100 MG, BID
     Route: 048
  19. IRINOTECAN HYDROCHLORIDE. [Suspect]
     Active Substance: IRINOTECAN HYDROCHLORIDE
     Dosage: 180 MG, Q2WEEKS
     Route: 041
     Dates: start: 20180605, end: 20180605
  20. CALCIUM LEVOFOLINATE [Concomitant]
     Active Substance: LEVOLEUCOVORIN CALCIUM
     Dosage: UNK
     Route: 041
     Dates: start: 20180703, end: 20180703
  21. KETOTIFEN FUMARATE. [Concomitant]
     Active Substance: KETOTIFEN FUMARATE
     Dosage: UNK, QID
     Route: 047
  22. FLUOROURACIL. [Concomitant]
     Active Substance: FLUOROURACIL
     Indication: COLON CANCER
     Dosage: 660 MG, Q2WK
     Route: 040
     Dates: start: 20180508, end: 20180508
  23. FLUOROURACIL. [Concomitant]
     Active Substance: FLUOROURACIL
     Dosage: 3500 MG, Q2WK
     Route: 041
     Dates: start: 20180605
  24. CALCIUM LEVOFOLINATE [Concomitant]
     Active Substance: LEVOLEUCOVORIN CALCIUM
     Indication: RECTAL CANCER
     Dosage: UNK
     Route: 041
     Dates: start: 20180605, end: 20180605
  25. CALCIUM LEVOFOLINATE [Concomitant]
     Active Substance: LEVOLEUCOVORIN CALCIUM
     Dosage: UNK
     Route: 041
     Dates: start: 20180828
  26. PANTETHINE [Concomitant]
     Active Substance: PANTETHINE
     Dosage: 0.5 G, TID
     Route: 048
  27. BIFIDOBACTERIUM LONGUM W/ENTEROCOCCUS FAECIUM [Concomitant]
     Dosage: 0.5 G, TID
     Route: 048
  28. VECTIBIX [Suspect]
     Active Substance: PANITUMUMAB
     Indication: RECTAL CANCER
     Dosage: 350 MG, Q2WEEKS
     Route: 041
     Dates: start: 20180508, end: 20180508
  29. VECTIBIX [Suspect]
     Active Substance: PANITUMUMAB
     Dosage: 300 MG, Q2WEEKS
     Route: 041
     Dates: start: 20180703, end: 20180703
  30. VECTIBIX [Suspect]
     Active Substance: PANITUMUMAB
     Dosage: UNK
     Route: 041
     Dates: start: 20180731, end: 20180731
  31. FLUOROURACIL. [Concomitant]
     Active Substance: FLUOROURACIL
     Dosage: 3930 MG, Q2WK
     Route: 041
     Dates: start: 20180605
  32. CALCIUM LEVOFOLINATE [Concomitant]
     Active Substance: LEVOLEUCOVORIN CALCIUM
     Dosage: UNK
     Route: 041
     Dates: start: 20180731, end: 20180731

REACTIONS (4)
  - Epistaxis [Unknown]
  - Dermatitis acneiform [Recovering/Resolving]
  - Febrile neutropenia [Recovered/Resolved]
  - Pruritus [Recovering/Resolving]

NARRATIVE: CASE EVENT DATE: 20180514
